FAERS Safety Report 9855489 (Version 2)
Quarter: 2014Q1

REPORT INFORMATION
  Report Type: Spontaneous
  Country: JP (occurrence: JP)
  Receive Date: 20140130
  Receipt Date: 20140130
  Transmission Date: 20141002
  Serious: Yes (Other)
  Sender: FDA-Public Use
  Company Number: JP-ASTELLAS-2013JP013008

PATIENT
  Sex: Male

DRUGS (9)
  1. GRACEPTOR [Suspect]
     Indication: RENAL TRANSPLANT
     Dosage: 0.5 MG, UID/QD
     Route: 048
  2. GRACEPTOR [Suspect]
     Dosage: 1 MG, UID/QD
     Route: 048
  3. CELLCEPT /01275102/ [Suspect]
     Dosage: UNK
     Route: 048
  4. LYRICA [Suspect]
     Indication: POST HERPETIC NEURALGIA
     Dosage: UNK
     Route: 048
  5. CYMBALTA [Suspect]
     Indication: POST HERPETIC NEURALGIA
     Dosage: UNK
     Route: 048
  6. TRAMADOL HYDROCHLORIDE AND ACETAMINOPHEN [Suspect]
     Indication: POST HERPETIC NEURALGIA
     Dosage: UNK
     Route: 048
  7. MEDROL                             /00049601/ [Concomitant]
     Route: 048
  8. URIEF [Concomitant]
     Route: 048
  9. EURODIN                            /00425901/ [Concomitant]
     Route: 048

REACTIONS (12)
  - Delirium [Unknown]
  - Convulsion [Not Recovered/Not Resolved]
  - Paraesthesia [Unknown]
  - Cold sweat [Unknown]
  - Pruritus [Unknown]
  - Pollakiuria [Unknown]
  - Gynaecomastia [Unknown]
  - Erythema [Unknown]
  - Haemorrhage subcutaneous [Unknown]
  - Depersonalisation [Unknown]
  - Dystonia [Unknown]
  - Herpes zoster [Not Recovered/Not Resolved]
